FAERS Safety Report 10265112 (Version 2)
Quarter: 2017Q2

REPORT INFORMATION
  Report Type: Spontaneous
  Country: CH (occurrence: CH)
  Receive Date: 20140627
  Receipt Date: 20170413
  Transmission Date: 20170829
  Serious: Yes (Life-Threatening, Hospitalization)
  Sender: FDA-Public Use
  Company Number: CH-ASTRAZENECA-2014SE46969

PATIENT
  Age: 62 Year
  Sex: Male

DRUGS (5)
  1. QUETIAPINE. [Suspect]
     Active Substance: QUETIAPINE
     Indication: BIPOLAR DISORDER
     Route: 048
  2. FLECAINIDE [Suspect]
     Active Substance: FLECAINIDE
     Dosage: 25.0DF ONCE/SINGLE ADMINISTRATION
     Route: 048
  3. LAMOTRIGINE. [Suspect]
     Active Substance: LAMOTRIGINE
     Route: 065
  4. VITAMIN K ANTAGONIST NOS [Concomitant]
     Route: 065
  5. WARFARIN [Concomitant]
     Active Substance: WARFARIN
     Route: 065

REACTIONS (4)
  - Suicide attempt [Recovered/Resolved]
  - Mental status changes [Recovered/Resolved]
  - Somnolence [Unknown]
  - Fatigue [Recovered/Resolved]
